FAERS Safety Report 10011491 (Version 1)
Quarter: 2014Q1

REPORT INFORMATION
  Report Type: Spontaneous
  Country: US (occurrence: US)
  Receive Date: 20140314
  Receipt Date: 20140314
  Transmission Date: 20141002
  Serious: No
  Sender: FDA-Public Use
  Company Number: US-ENDO PHARMACEUTICALS INC.-OXYC20130009

PATIENT
  Sex: Female

DRUGS (13)
  1. OXYCODONE HCL [Suspect]
     Indication: HERPES ZOSTER
     Dosage: UNKNOWN
     Route: 048
     Dates: start: 20120512
  2. OXYMORPHONE HYDROCHLORIDE [Suspect]
     Indication: HERPES ZOSTER
     Dosage: UNKNOWN
     Route: 048
     Dates: start: 20120512
  3. LIDODERM [Suspect]
     Indication: HERPES ZOSTER
     Dosage: UNKNOWN
     Route: 062
     Dates: start: 20120512
  4. VICODIN [Suspect]
     Indication: HERPES ZOSTER
     Dosage: UNKNOWN
     Route: 065
     Dates: start: 20120512
  5. TRAMADOL [Suspect]
     Indication: HERPES ZOSTER
     Dosage: UNKNOWN
     Route: 065
     Dates: start: 20120512
  6. GABAPENTIN [Suspect]
     Indication: HERPES ZOSTER
     Dosage: UNKNOWN
     Route: 065
     Dates: start: 20120512
  7. SIMVASTATIN [Concomitant]
     Indication: PRODUCT USED FOR UNKNOWN INDICATION
     Dosage: UNKNOWN
     Route: 065
  8. LIPITOR [Concomitant]
     Indication: PRODUCT USED FOR UNKNOWN INDICATION
     Dosage: UNKNOWN
     Route: 065
  9. CRESTOR [Concomitant]
     Indication: PRODUCT USED FOR UNKNOWN INDICATION
     Dosage: UNKNOWN
     Route: 065
  10. CHOLESTYRAMINE [Concomitant]
     Indication: PRODUCT USED FOR UNKNOWN INDICATION
     Dosage: UNKNOWN
     Route: 065
  11. RED YEAST RICE [Concomitant]
     Indication: PRODUCT USED FOR UNKNOWN INDICATION
     Dosage: UNKNOWN
     Route: 065
  12. PRAVACHOL [Concomitant]
     Indication: PRODUCT USED FOR UNKNOWN INDICATION
     Dosage: UNKNOWN
     Route: 065
  13. LOVASTATIN [Concomitant]
     Indication: PRODUCT USED FOR UNKNOWN INDICATION
     Dosage: UNKNOWN
     Route: 065

REACTIONS (2)
  - Malaise [Unknown]
  - Dizziness [Unknown]
